FAERS Safety Report 9675158 (Version 4)
Quarter: 2014Q3

REPORT INFORMATION
  Report Type: Spontaneous
  Country: US (occurrence: None)
  Receive Date: 20131105
  Receipt Date: 20140804
  Transmission Date: 20150326
  Serious: Yes (Life-Threatening)
  Sender: FDA-Public Use
  Company Number: 1713747-2013-99971

PATIENT
  Age: 68 Year
  Sex: Female
  Weight: 77.7 kg

DRUGS (33)
  1. ACID CONCENTRATE [Concomitant]
     Active Substance: DEVICE
  2. ASPIRIN. [Concomitant]
     Active Substance: ASPIRIN
  3. SPIRIVA [Concomitant]
     Active Substance: TIOTROPIUM BROMIDE MONOHYDRATE
  4. MYCAMINE [Concomitant]
     Active Substance: MICAFUNGIN SODIUM
  5. ZOFRAN [Concomitant]
     Active Substance: ONDANSETRON HYDROCHLORIDE
  6. LOPRESSOR [Concomitant]
     Active Substance: METOPROLOL TARTRATE
  7. BLOODLINES [Concomitant]
  8. PLAVIX [Concomitant]
     Active Substance: CLOPIDOGREL BISULFATE
  9. HECTOROL [Concomitant]
     Active Substance: DOXERCALCIFEROL
  10. REGLAN [Concomitant]
     Active Substance: METOCLOPRAMIDE HYDROCHLORIDE
  11. PROTONIX [Concomitant]
     Active Substance: PANTOPRAZOLE SODIUM
  12. GENTAMYCIN [Concomitant]
     Active Substance: GENTAMICIN
  13. MORPHINE [Concomitant]
     Active Substance: MORPHINE
  14. LANTUS INSULIN [Concomitant]
  15. XOPENEX [Concomitant]
     Active Substance: LEVALBUTEROL HYDROCHLORIDE
  16. NEO-SYNEPHRINE [Concomitant]
     Active Substance: PHENYLEPHRINE HYDROCHLORIDE
  17. FRESENIUS 2008K HEMODIALYS MACHINE [Concomitant]
  18. SODIUM BICARB [Concomitant]
  19. XANAX [Concomitant]
     Active Substance: ALPRAZOLAM
  20. DIPHENHYDRAMINE [Concomitant]
     Active Substance: DIPHENHYDRAMINE
  21. HYDRALAZINE [Concomitant]
     Active Substance: HYDRALAZINE HYDROCHLORIDE
  22. AMBIEN [Concomitant]
     Active Substance: ZOLPIDEM TARTRATE
  23. PROCRIT [Concomitant]
     Active Substance: ERYTHROPOIETIN
  24. TOBRAMYCIN [Concomitant]
     Active Substance: TOBRAMYCIN
  25. DIALYZER [Concomitant]
  26. ISOSOURCE [Concomitant]
  27. EPOGEN [Concomitant]
     Active Substance: ERYTHROPOIETIN
  28. BENEPROTEIN [Concomitant]
  29. MIDODRINE [Concomitant]
     Active Substance: MIDODRINE
  30. VANCOMYCIN [Concomitant]
     Active Substance: VANCOMYCIN
  31. BISACODYLE [Concomitant]
  32. LOMOTIL [Concomitant]
     Active Substance: ATROPINE SULFATE\DIPHENOXYLATE HYDROCHLORIDE
  33. 0.9% SODIUM CHLORIDE INJECTION, USP IN MINI-BAG PLUS CONTAINER [Suspect]
     Active Substance: SODIUM CHLORIDE
     Indication: HAEMODIALYSIS
     Dosage: 200ML, 300ML, 400 ML
     Dates: start: 20131011

REACTIONS (2)
  - Cardio-respiratory arrest [None]
  - Bradycardia [None]

NARRATIVE: CASE EVENT DATE: 20131011
